FAERS Safety Report 5441218-9 (Version None)
Quarter: 2007Q3

REPORT INFORMATION
  Report Type: 
  Country: None (occurrence: None)
  Receive Date: 20070901
  Receipt Date: 20070821
  Transmission Date: 20080115
  Serious: Yes (Other)
  Sender: FDA-Public Use
  Company Number: FR-PFIZER INC-2007070419

PATIENT
  Age: 40 Year
  Sex: Female

DRUGS (1)
  1. CHAMPIX [Suspect]
     Indication: SMOKING CESSATION THERAPY

REACTIONS (7)
  - ABDOMINAL PAIN UPPER [None]
  - FATIGUE [None]
  - GAMMA-GLUTAMYLTRANSFERASE INCREASED [None]
  - HYPERTENSION [None]
  - HYPOTENSION [None]
  - RED BLOOD CELL SEDIMENTATION RATE INCREASED [None]
  - TRANSAMINASES INCREASED [None]
